FAERS Safety Report 9132470 (Version 1)
Quarter: 2013Q1

REPORT INFORMATION
  Report Type: Report from Study
  Country: UA (occurrence: UA)
  Receive Date: 20130301
  Receipt Date: 20130301
  Transmission Date: 20140127
  Serious: Yes (Hospitalization)
  Sender: FDA-Public Use
  Company Number: UA-GLAXOSMITHKLINE-B0742090A

PATIENT
  Age: 53 Year
  Sex: Male
  Weight: 48 kg

DRUGS (3)
  1. LAPATINIB [Suspect]
     Indication: GASTRIC CANCER
     Dosage: 1250MG PER DAY
     Route: 048
     Dates: start: 20110801, end: 20110815
  2. OXALIPLATIN [Suspect]
     Indication: GASTRIC CANCER
     Dosage: 200MG CYCLIC
     Route: 042
     Dates: start: 20110801, end: 20110815
  3. CAPECITABINE [Suspect]
     Indication: GASTRIC CANCER
     Dosage: 2500MG TWICE PER DAY
     Route: 048
     Dates: start: 20110801, end: 20110815

REACTIONS (2)
  - Diarrhoea [Not Recovered/Not Resolved]
  - Dehydration [Not Recovered/Not Resolved]
